FAERS Safety Report 19401827 (Version 1)
Quarter: 2021Q2

REPORT INFORMATION
  Report Type: Spontaneous
  Country: LT (occurrence: LT)
  Receive Date: 20210611
  Receipt Date: 20210611
  Transmission Date: 20210717
  Serious: Yes (Hospitalization)
  Sender: FDA-Public Use
  Company Number: LT-ASTRAZENECA-2021A499275

PATIENT
  Age: 69 Year
  Sex: Female
  Weight: 70 kg

DRUGS (2)
  1. LORAZEPAM. [Suspect]
     Active Substance: LORAZEPAM
     Dosage: AMOUNT OF TABLETS CONSUMED CONSUMED BY PATIENT IS UNCLEAR
     Route: 048
     Dates: start: 20210510, end: 20210510
  2. QUETIAPINE. [Suspect]
     Active Substance: QUETIAPINE
     Dosage: 25.0MG UNKNOWN
     Route: 048
     Dates: start: 20210510, end: 20210510

REACTIONS (3)
  - Medication error [Recovered/Resolved]
  - Somnolence [Recovered/Resolved]
  - Accidental overdose [Recovered/Resolved]

NARRATIVE: CASE EVENT DATE: 20210510
